FAERS Safety Report 5546766-9 (Version None)
Quarter: 2007Q4

REPORT INFORMATION
  Report Type: 
  Country: None (occurrence: None)
  Receive Date: 20071207
  Receipt Date: 20071207
  Transmission Date: 20080405
  Serious: Yes (Hospitalization)
  Sender: FDA-Public Use
  Company Number: None

PATIENT
  Sex: Female

DRUGS (8)
  1. REVLIMID [Suspect]
     Indication: MULTIPLE MYELOMA
     Dosage: 10MG   DAILY 21D/28D  PO
     Route: 048
  2. VELCADE [Concomitant]
  3. DECADRON [Concomitant]
  4. AVELOX [Concomitant]
  5. CITALOPRAM [Concomitant]
  6. HYDROMORPHONE HCL [Concomitant]
  7. LACTULOSE [Concomitant]
  8. BISACODYL [Concomitant]

REACTIONS (3)
  - ANAEMIA [None]
  - PNEUMONIA [None]
  - VOMITING [None]
